FAERS Safety Report 23963476 (Version 3)
Quarter: 2024Q3

REPORT INFORMATION
  Report Type: Spontaneous
  Country: US (occurrence: US)
  Receive Date: 20240611
  Receipt Date: 20240816
  Transmission Date: 20241017
  Serious: No
  Sender: PFIZER
  Company Number: US-PFIZER INC-202400174359

PATIENT

DRUGS (2)
  1. THROMBIN-JMI [Suspect]
     Active Substance: THROMBIN
     Dosage: UNK
  2. THROMBIN-JMI [Suspect]
     Active Substance: THROMBIN
     Dosage: UNK

REACTIONS (1)
  - Device issue [Unknown]
